FAERS Safety Report 9946794 (Version 1)
Quarter: 2014Q1

REPORT INFORMATION
  Report Type: Spontaneous
  Country: US (occurrence: US)
  Receive Date: 20140303
  Receipt Date: 20140303
  Transmission Date: 20141002
  Serious: No
  Sender: FDA-Public Use
  Company Number: US-ABBVIE-13P-163-1063539-00

PATIENT
  Age: 74 Year
  Sex: Female
  Weight: 66.28 kg

DRUGS (12)
  1. HUMIRA [Suspect]
     Indication: RHEUMATOID ARTHRITIS
     Dates: start: 201202
  2. LEFLUNOMIDE [Concomitant]
     Indication: RHEUMATOID ARTHRITIS
  3. PREDNISONE [Concomitant]
     Indication: RHEUMATOID ARTHRITIS
  4. CELEBREX [Concomitant]
     Indication: RHEUMATOID ARTHRITIS
  5. BALSALAZIDE [Concomitant]
     Indication: COLITIS ULCERATIVE
  6. SYNTHROID [Concomitant]
     Indication: THYROID THERAPY
  7. HYDROCHLOROTHIAZIDE [Concomitant]
     Indication: BLOOD PRESSURE
  8. FISH OIL [Concomitant]
     Indication: ROUTINE HEALTH MAINTENANCE
  9. MULTIVITAMIN [Concomitant]
     Indication: ROUTINE HEALTH MAINTENANCE
  10. CALCIUM [Concomitant]
     Indication: ROUTINE HEALTH MAINTENANCE
  11. VITAMIN D [Concomitant]
     Indication: ROUTINE HEALTH MAINTENANCE
  12. PREMPRO [Concomitant]
     Indication: UNEVALUABLE EVENT

REACTIONS (3)
  - Incorrect dose administered [Recovered/Resolved]
  - Medication error [Recovered/Resolved]
  - Incorrect route of drug administration [Recovered/Resolved]
